FAERS Safety Report 21669104 (Version 1)
Quarter: 2022Q4

REPORT INFORMATION
  Report Type: Spontaneous
  Country: US (occurrence: US)
  Receive Date: 20221201
  Receipt Date: 20221201
  Transmission Date: 20230113
  Serious: No
  Sender: FDA-Public Use
  Company Number: US-BRISTOL-MYERS SQUIBB COMPANY-2022-146559

PATIENT
  Age: 44 Year
  Sex: Male
  Weight: 156 kg

DRUGS (3)
  1. SPRYCEL [Suspect]
     Active Substance: DASATINIB
     Indication: Chronic myeloid leukaemia
     Route: 048
     Dates: start: 202109
  2. SPRYCEL [Suspect]
     Active Substance: DASATINIB
     Route: 048
  3. ASPIRIN [Concomitant]
     Active Substance: ASPIRIN
     Indication: Chronic myeloid leukaemia
     Route: 065

REACTIONS (2)
  - Constipation [Unknown]
  - Discomfort [Unknown]
